FAERS Safety Report 8291058-0 (Version None)
Quarter: 2012Q2

REPORT INFORMATION
  Report Type: 
  Country: None (occurrence: None)
  Receive Date: 20120417
  Receipt Date: 20120131
  Transmission Date: 20120825
  Serious: No
  Sender: FDA-Public Use
  Company Number: US-ASTRAZENECA-2012SE06558

PATIENT
  Age: 74 Year
  Sex: Female
  Weight: 54.4 kg

DRUGS (5)
  1. FISH OIL [Concomitant]
  2. ZOLOFT [Concomitant]
     Indication: ANTIDEPRESSANT THERAPY
  3. IBUPROFEN [Concomitant]
  4. NEXIUM [Suspect]
     Indication: ABDOMINAL PAIN UPPER
     Route: 048
  5. CLONAZEPAM [Concomitant]

REACTIONS (4)
  - ARTHRITIS [None]
  - OFF LABEL USE [None]
  - GASTRIC ULCER [None]
  - OSTEOPOROSIS [None]
